FAERS Safety Report 18578236 (Version 1)
Quarter: 2020Q4

REPORT INFORMATION
  Report Type: Spontaneous
  Country: GB (occurrence: GB)
  Receive Date: 20201204
  Receipt Date: 20201204
  Transmission Date: 20210114
  Serious: Yes (Other)
  Sender: FDA-Public Use
  Company Number: GB-ACCORD-209753

PATIENT
  Age: 54 Year
  Sex: Female

DRUGS (1)
  1. ATORVASTATIN/ATORVASTATIN CALCIUM [Suspect]
     Active Substance: ATORVASTATIN CALCIUM
     Indication: PRODUCT USED FOR UNKNOWN INDICATION

REACTIONS (4)
  - Mouth swelling [Recovering/Resolving]
  - Headache [Recovered/Resolved]
  - Lip swelling [Recovered/Resolved]
  - Dyspepsia [Recovered/Resolved]
